FAERS Safety Report 15991851 (Version 1)
Quarter: 2019Q1

REPORT INFORMATION
  Report Type: Spontaneous
  Country: FR (occurrence: FR)
  Receive Date: 20190221
  Receipt Date: 20190221
  Transmission Date: 20190418
  Serious: Yes (Other)
  Sender: FDA-Public Use
  Company Number: FR-PFIZER INC-2019070299

PATIENT
  Sex: Male

DRUGS (2)
  1. MYDRIATICUM [Suspect]
     Active Substance: TROPICAMIDE
     Dosage: UNK
  2. PREGABALIN. [Suspect]
     Active Substance: PREGABALIN
     Dosage: UNK

REACTIONS (2)
  - Drug abuse [Unknown]
  - Prescription form tampering [Unknown]
